FAERS Safety Report 24812353 (Version 1)
Quarter: 2025Q1

REPORT INFORMATION
  Report Type: Report from Study
  Country: US (occurrence: US)
  Receive Date: 20250106
  Receipt Date: 20250106
  Transmission Date: 20250408
  Serious: Yes (Hospitalization, Other)
  Sender: ABBVIE
  Company Number: US-ABBVIE-6072055

PATIENT
  Age: 40 Year
  Sex: Male

DRUGS (1)
  1. SKYRIZI [Suspect]
     Active Substance: RISANKIZUMAB-RZAA
     Indication: Crohn^s disease
     Route: 058

REACTIONS (4)
  - Surgery [Recovered/Resolved]
  - Fatigue [Recovering/Resolving]
  - Sitting disability [Recovering/Resolving]
  - Mobility decreased [Recovering/Resolving]

NARRATIVE: CASE EVENT DATE: 20241101
